FAERS Safety Report 9067440 (Version 1)
Quarter: 2013Q1

REPORT INFORMATION
  Report Type: Spontaneous
  Country: FR (occurrence: FR)
  Receive Date: 20130214
  Receipt Date: 20130214
  Transmission Date: 20140127
  Serious: Yes (Hospitalization)
  Sender: FDA-Public Use
  Company Number: FR-BRISTOL-MYERS SQUIBB COMPANY-17362096

PATIENT
  Age: 77 Year
  Sex: Female

DRUGS (5)
  1. COUMADIN [Suspect]
     Route: 048
     Dates: start: 20121110
  2. ROCEPHINE [Suspect]
     Indication: ARTHRITIS INFECTIVE
     Route: 042
     Dates: start: 20121004, end: 20130123
  3. OXYNORM [Suspect]
     Route: 048
     Dates: start: 20121002
  4. ENALAPRIL [Concomitant]
     Dates: start: 2010
  5. CRESTOR [Concomitant]
     Dates: start: 2010

REACTIONS (1)
  - Cholelithiasis [Recovered/Resolved]
